FAERS Safety Report 5679245-9 (Version None)
Quarter: 2008Q1

REPORT INFORMATION
  Report Type: 
  Country: None (occurrence: None)
  Receive Date: 20080325
  Receipt Date: 20080314
  Transmission Date: 20080703
  Serious: Yes (Other)
  Sender: FDA-Public Use
  Company Number: DE-JNJFOC-20080305263

PATIENT
  Sex: Male
  Weight: 4.04 kg

DRUGS (6)
  1. REMICADE [Suspect]
     Route: 050
  2. REMICADE [Suspect]
     Route: 050
  3. REMICADE [Suspect]
     Indication: DRUG EXPOSURE DURING PREGNANCY
     Route: 050
  4. ZYTRIM [Suspect]
  5. ZYTRIM [Suspect]
     Indication: CROHN'S DISEASE
  6. BUDENOFALK [Suspect]
     Indication: CROHN'S DISEASE

REACTIONS (3)
  - APGAR SCORE LOW [None]
  - CAESAREAN SECTION [None]
  - DRUG EXPOSURE DURING PREGNANCY [None]
